FAERS Safety Report 4527349-6 (Version None)
Quarter: 2004Q4

REPORT INFORMATION
  Report Type: 
  Country: None (occurrence: None)
  Receive Date: 20041214
  Receipt Date: 20041214
  Transmission Date: 20050328
  Serious: Yes (Hospitalization)
  Sender: FDA-Public Use
  Company Number: None

PATIENT
  Age: 53 Year
  Sex: Male
  Weight: 85 kg

DRUGS (6)
  1. TARCEVA [Suspect]
     Indication: GLIOBLASTOMA MULTIFORME
     Dosage: 100MG PO DAILY
     Route: 048
     Dates: start: 20041018, end: 20041127
  2. METFORMIN HCL [Concomitant]
  3. DECADRON [Concomitant]
  4. TAGAMET [Concomitant]
  5. ZOFRAN [Concomitant]
  6. NORVASC [Concomitant]

REACTIONS (6)
  - ABASIA [None]
  - BEDRIDDEN [None]
  - FAECAL INCONTINENCE [None]
  - FATIGUE [None]
  - LETHARGY [None]
  - URINARY INCONTINENCE [None]
